FAERS Safety Report 14647096 (Version 1)
Quarter: 2018Q1

REPORT INFORMATION
  Report Type: Spontaneous
  Country: US (occurrence: US)
  Receive Date: 20180316
  Receipt Date: 20180316
  Transmission Date: 20180509
  Serious: Yes (Hospitalization, Disabling)
  Sender: FDA-Public Use
  Company Number: US-JNJFOC-20180317365

PATIENT
  Age: 64 Year
  Sex: Male

DRUGS (1)
  1. INVOKANA [Suspect]
     Active Substance: CANAGLIFLOZIN
     Indication: TYPE 2 DIABETES MELLITUS
     Route: 048
     Dates: start: 20151010

REACTIONS (5)
  - Sepsis [Unknown]
  - Gas gangrene [Unknown]
  - Cellulitis [Unknown]
  - Leg amputation [Unknown]
  - Skin ulcer [Unknown]

NARRATIVE: CASE EVENT DATE: 20160229
